FAERS Safety Report 11450436 (Version 1)
Quarter: 2015Q3

REPORT INFORMATION
  Report Type: Spontaneous
  Country: US (occurrence: US)
  Receive Date: 20150903
  Receipt Date: 20150903
  Transmission Date: 20151125
  Serious: No
  Sender: FDA-Public Use
  Company Number: US-ROCHE-1056192

PATIENT
  Age: 53 Year
  Sex: Male

DRUGS (1)
  1. PEGASYS [Suspect]
     Active Substance: PEGINTERFERON ALFA-2A
     Indication: PRODUCT USED FOR UNKNOWN INDICATION
     Route: 065

REACTIONS (12)
  - Abdominal discomfort [Unknown]
  - Rash [Unknown]
  - Sinusitis [Unknown]
  - Weight decreased [Unknown]
  - Cough [Unknown]
  - Fall [Unknown]
  - Skin exfoliation [Unknown]
  - Balance disorder [Unknown]
  - Pneumonia [Unknown]
  - Diarrhoea [Unknown]
  - Amnesia [Unknown]
  - Epistaxis [Unknown]
